FAERS Safety Report 7501302-2 (Version None)
Quarter: 2011Q2

REPORT INFORMATION
  Report Type: 
  Country: None (occurrence: None)
  Receive Date: 20110524
  Receipt Date: 20110519
  Transmission Date: 20111010
  Serious: Yes (Death, Other)
  Sender: FDA-Public Use
  Company Number: JP-PFIZER INC-2011091173

PATIENT
  Age: 65 Year
  Sex: Female
  Weight: 50 kg

DRUGS (5)
  1. SUTENT [Suspect]
     Indication: RENAL CELL CARCINOMA
     Dosage: 25 MG, 1X/DAY
     Route: 048
     Dates: start: 20110210
  2. LEVOTHYROXINE SODIUM [Concomitant]
     Indication: HYPOTHYROIDISM
     Dosage: 25 UG, 1X/DAY
     Route: 048
     Dates: start: 20090430
  3. PROGRAF [Concomitant]
     Indication: RHEUMATOID ARTHRITIS
     Dosage: 1.5 MG, 1X/DAY
     Route: 048
     Dates: end: 20110216
  4. OXYCONTIN [Concomitant]
     Indication: CANCER PAIN
     Dosage: 20 MG, 1X/DAY
     Route: 048
     Dates: start: 20110115
  5. PREDNISOLONE [Concomitant]
     Indication: INTERSTITIAL LUNG DISEASE
     Dosage: 5 MG, 2X/DAY
     Route: 048

REACTIONS (3)
  - RECTAL PERFORATION [None]
  - PALMAR-PLANTAR ERYTHRODYSAESTHESIA SYNDROME [None]
  - STOMATITIS [None]
